FAERS Safety Report 4824962-3 (Version None)
Quarter: 2005Q4

REPORT INFORMATION
  Report Type: 
  Country: None (occurrence: None)
  Receive Date: 20051110
  Receipt Date: 20050811
  Transmission Date: 20060501
  Serious: Yes (Death, Other)
  Sender: FDA-Public Use
  Company Number: US-MERCK-0508USA02095

PATIENT
  Age: 65 Year
  Sex: Male
  Weight: 84 kg

DRUGS (4)
  1. VIOXX [Suspect]
     Indication: SPONDYLITIS
     Route: 048
     Dates: start: 19990101, end: 20030813
  2. VIOXX [Suspect]
     Indication: OSTEOARTHRITIS
     Route: 048
     Dates: start: 19990101, end: 20030813
  3. ASPIRIN [Concomitant]
     Indication: SPONDYLITIS
     Route: 065
     Dates: start: 20000101
  4. ASPIRIN [Concomitant]
     Indication: OSTEOARTHRITIS
     Route: 065
     Dates: start: 20000101

REACTIONS (3)
  - MYOCARDIAL INFARCTION [None]
  - PROSTATIC DISORDER [None]
  - SUDDEN CARDIAC DEATH [None]
